FAERS Safety Report 20244861 (Version 1)
Quarter: 2021Q4

REPORT INFORMATION
  Report Type: Spontaneous
  Country: US (occurrence: None)
  Receive Date: 20211229
  Receipt Date: 20211229
  Transmission Date: 20220304
  Serious: Yes (Other)
  Sender: FDA-Public Use
  Company Number: US-Hikma Pharmaceuticals USA Inc.-US-H14001-21-05491

PATIENT
  Age: 68 Year
  Sex: Male

DRUGS (2)
  1. MERCAPTOPURINE [Suspect]
     Active Substance: MERCAPTOPURINE
     Indication: Crohn^s disease
     Dosage: UNKNOWN
     Route: 065
  2. BALSALAZIDE [Concomitant]
     Active Substance: BALSALAZIDE
     Indication: Crohn^s disease
     Dosage: UNKNOWN
     Route: 065

REACTIONS (2)
  - Drug-induced liver injury [Unknown]
  - Focal nodular hyperplasia [Unknown]
